FAERS Safety Report 6449388-0 (Version None)
Quarter: 2009Q4

REPORT INFORMATION
  Report Type: 
  Country: None (occurrence: None)
  Receive Date: 20091120
  Receipt Date: 20091112
  Transmission Date: 20100525
  Serious: Yes (Hospitalization, Other)
  Sender: FDA-Public Use
  Company Number: DE-JNJFOC-20091103469

PATIENT
  Age: 73 Year
  Sex: Male

DRUGS (11)
  1. HALDOL [Suspect]
     Route: 048
     Dates: start: 20090730, end: 20090802
  2. HALDOL [Suspect]
     Indication: DRUG USE FOR UNKNOWN INDICATION
     Route: 048
     Dates: start: 20090730, end: 20090802
  3. MELPERON [Suspect]
     Route: 048
     Dates: start: 20090719, end: 20090812
  4. MELPERON [Suspect]
     Indication: DRUG USE FOR UNKNOWN INDICATION
     Route: 048
     Dates: start: 20090719, end: 20090812
  5. DISTRANEURIN [Suspect]
     Indication: DRUG USE FOR UNKNOWN INDICATION
     Route: 048
     Dates: start: 20090731, end: 20090806
  6. QUILONUM RETARD [Suspect]
     Route: 048
  7. QUILONUM RETARD [Suspect]
     Indication: DRUG USE FOR UNKNOWN INDICATION
     Route: 048
  8. ZYPREXA [Suspect]
     Route: 048
     Dates: start: 20090719, end: 20090811
  9. ZYPREXA [Suspect]
     Indication: DRUG USE FOR UNKNOWN INDICATION
     Route: 048
     Dates: start: 20090719, end: 20090811
  10. TAVANIC [Concomitant]
     Route: 048
     Dates: start: 20090727, end: 20090804
  11. ASPIRIN [Concomitant]
     Route: 048

REACTIONS (5)
  - BLOOD CREATINE PHOSPHOKINASE INCREASED [None]
  - BRADYKINESIA [None]
  - CHILLS [None]
  - DROOLING [None]
  - GAIT DISTURBANCE [None]
